FAERS Safety Report 5148671-9 (Version None)
Quarter: 2006Q4

REPORT INFORMATION
  Report Type: 
  Country: None (occurrence: None)
  Receive Date: 20061106
  Receipt Date: 20061023
  Transmission Date: 20070319
  Serious: No
  Sender: FDA-Public Use
  Company Number: 2006-149670-NL

PATIENT
  Sex: Male

DRUGS (2)
  1. DEXAMETHASONE [Suspect]
  2. CLARITHROMYCIN [Suspect]
     Dosage: 500 MG
     Route: 048

REACTIONS (3)
  - CONFUSIONAL STATE [None]
  - HEADACHE [None]
  - NIGHT SWEATS [None]
